FAERS Safety Report 5585526-X (Version None)
Quarter: 2008Q1

REPORT INFORMATION
  Report Type: 
  Country: None (occurrence: None)
  Receive Date: 20080109
  Receipt Date: 20080103
  Transmission Date: 20080703
  Serious: Yes (Hospitalization, Other)
  Sender: FDA-Public Use
  Company Number: B0359620A

PATIENT
  Age: 30 Year
  Sex: Female

DRUGS (7)
  1. SEROXAT [Suspect]
     Indication: DEPRESSION
     Route: 065
     Dates: start: 19990611, end: 20030501
  2. ZOPICLONE [Concomitant]
     Route: 065
  3. PROZAC [Concomitant]
     Route: 065
     Dates: start: 19990419
  4. LUSTRAL [Concomitant]
     Route: 065
     Dates: start: 20000510
  5. LORMETAZEPAM [Concomitant]
     Route: 065
     Dates: start: 19990528
  6. CHLORDIAZEPOXIDE [Concomitant]
     Route: 065
     Dates: start: 20030201
  7. EFFEXOR [Concomitant]
     Route: 065
     Dates: start: 19990607

REACTIONS (14)
  - AGGRESSION [None]
  - CONFUSIONAL STATE [None]
  - DIZZINESS [None]
  - DRUG WITHDRAWAL SYNDROME [None]
  - FEELING ABNORMAL [None]
  - HEADACHE [None]
  - HYPERHIDROSIS [None]
  - INFLUENZA [None]
  - MOOD SWINGS [None]
  - NIGHTMARE [None]
  - OVERDOSE [None]
  - PARAESTHESIA [None]
  - SUICIDAL BEHAVIOUR [None]
  - TREMOR [None]
